FAERS Safety Report 6325396-5 (Version None)
Quarter: 2009Q3

REPORT INFORMATION
  Report Type: 
  Country: None (occurrence: None)
  Receive Date: 20090824
  Receipt Date: 20090817
  Transmission Date: 20100115
  Serious: Yes (Other)
  Sender: FDA-Public Use
  Company Number: US-AVENTIS-200917409US

PATIENT
  Sex: Male

DRUGS (2)
  1. LANTUS [Suspect]
     Route: 058
     Dates: start: 20060101
  2. NOVOLOG [Suspect]
     Dosage: DOSE: UNK

REACTIONS (3)
  - BLINDNESS UNILATERAL [None]
  - HAEMORRHAGE [None]
  - RETINAL DETACHMENT [None]
